FAERS Safety Report 14355606 (Version 2)
Quarter: 2018Q1

REPORT INFORMATION
  Report Type: Spontaneous
  Country: PL (occurrence: PL)
  Receive Date: 20180105
  Receipt Date: 20180111
  Transmission Date: 20180509
  Serious: Yes (Other)
  Sender: FDA-Public Use
  Company Number: PL-JNJFOC-20180103852

PATIENT
  Age: 30 Year
  Sex: Female
  Weight: 47 kg

DRUGS (3)
  1. CYCLOPHOSPHAMIDE. [Suspect]
     Active Substance: CYCLOPHOSPHAMIDE
     Indication: MALIGNANT CONNECTIVE TISSUE NEOPLASM
     Route: 042
     Dates: start: 20170103, end: 20170530
  2. DOXORUBICIN HYDROCHLORIDE. [Suspect]
     Active Substance: DOXORUBICIN HYDROCHLORIDE
     Indication: MALIGNANT CONNECTIVE TISSUE NEOPLASM
     Route: 042
     Dates: start: 20170103, end: 20170530
  3. DACARBAZINE. [Suspect]
     Active Substance: DACARBAZINE
     Indication: MALIGNANT CONNECTIVE TISSUE NEOPLASM
     Route: 042
     Dates: start: 20170103, end: 20170530

REACTIONS (3)
  - Neutropenia [Unknown]
  - Product use in unapproved indication [Unknown]
  - Off label use [Unknown]

NARRATIVE: CASE EVENT DATE: 20170103
